FAERS Safety Report 8355924-X (Version None)
Quarter: 2012Q2

REPORT INFORMATION
  Report Type: 
  Country: None (occurrence: None)
  Receive Date: 20120514
  Receipt Date: 20120509
  Transmission Date: 20120825
  Serious: Yes (Hospitalization)
  Sender: FDA-Public Use
  Company Number: CH-US-EMD SERONO, INC.-7122781

PATIENT
  Sex: Female
  Weight: 97 kg

DRUGS (15)
  1. ALDACTONE 25 [Concomitant]
     Indication: PRODUCT USED FOR UNKNOWN INDICATION
  2. VENLAFAXINE [Concomitant]
     Indication: PRODUCT USED FOR UNKNOWN INDICATION
  3. TRAZODONE HCL [Concomitant]
     Indication: PRODUCT USED FOR UNKNOWN INDICATION
  4. EFFEXOR [Concomitant]
     Indication: DEPRESSION
  5. SINGULAIR [Concomitant]
     Indication: PRODUCT USED FOR UNKNOWN INDICATION
  6. OSTEOCAL D3 [Concomitant]
     Indication: PRODUCT USED FOR UNKNOWN INDICATION
  7. REBIF [Suspect]
     Indication: MULTIPLE SCLEROSIS
     Route: 058
     Dates: start: 20011101
  8. ESOMEPRAZOLE SODIUM [Concomitant]
     Indication: PRODUCT USED FOR UNKNOWN INDICATION
  9. DESLORATADINE [Concomitant]
     Indication: PRODUCT USED FOR UNKNOWN INDICATION
  10. CLONAZEPAM [Concomitant]
     Indication: PRODUCT USED FOR UNKNOWN INDICATION
  11. EXFORGE [Concomitant]
     Indication: HYPERTENSION
  12. REBIF [Suspect]
     Route: 058
  13. RANIMED [Concomitant]
     Indication: ABDOMINAL DISCOMFORT
  14. DAFLON [Concomitant]
     Indication: VEIN DISORDER
  15. ALDACTONE [Concomitant]
     Indication: HYPERTENSION

REACTIONS (2)
  - DEPRESSION [None]
  - SUICIDAL IDEATION [None]
